FAERS Safety Report 11502521 (Version 4)
Quarter: 2017Q4

REPORT INFORMATION
  Report Type: Report from Study
  Country: US (occurrence: US)
  Receive Date: 20150914
  Receipt Date: 20171222
  Transmission Date: 20180320
  Serious: Yes (Death, Other)
  Sender: FDA-Public Use
  Company Number: US-ASTELLAS-2015US022352

PATIENT
  Sex: Male

DRUGS (1)
  1. ENZALUTAMIDE [Suspect]
     Active Substance: ENZALUTAMIDE
     Indication: HORMONE-REFRACTORY PROSTATE CANCER
     Route: 048

REACTIONS (4)
  - Iron deficiency anaemia [Recovering/Resolving]
  - Malaise [Unknown]
  - Hot flush [Not Recovered/Not Resolved]
  - Death [Fatal]
